FAERS Safety Report 7685253-9 (Version None)
Quarter: 2011Q3

REPORT INFORMATION
  Report Type: 
  Country: None (occurrence: None)
  Receive Date: 20110816
  Receipt Date: 20110801
  Transmission Date: 20111222
  Serious: Yes (Hospitalization, Other)
  Sender: FDA-Public Use
  Company Number: US-ELI_LILLY_AND_COMPANY-US201010001758

PATIENT
  Sex: Male

DRUGS (7)
  1. NEXIUM [Concomitant]
     Indication: GASTRIC DISORDER
  2. ADVAIR DISKUS 100/50 [Concomitant]
  3. CIALIS [Suspect]
     Indication: ERECTILE DYSFUNCTION
     Dosage: 10 MG, WEEKLY (1/W)
     Dates: start: 20070101
  4. VIAGRA [Concomitant]
     Dosage: UNK
  5. SINGULAIR [Concomitant]
  6. UROXATRAL [Concomitant]
     Indication: BENIGN PROSTATIC HYPERPLASIA
  7. THEOPHYLLINE [Concomitant]
     Dosage: 300 MG, TID

REACTIONS (4)
  - BLOOD TESTOSTERONE INCREASED [None]
  - SURGERY [None]
  - ADVERSE EVENT [None]
  - INTENTIONAL DRUG MISUSE [None]
